FAERS Safety Report 8127201-3 (Version None)
Quarter: 2012Q1

REPORT INFORMATION
  Report Type: 
  Country: None (occurrence: None)
  Receive Date: 20120210
  Receipt Date: 20120201
  Transmission Date: 20120608
  Serious: Yes (Hospitalization)
  Sender: FDA-Public Use
  Company Number: JP-AMGEN-JPNCT2011069035

PATIENT
  Age: 74 Year
  Sex: Male
  Weight: 45 kg

DRUGS (19)
  1. LOXONIN [Concomitant]
  2. EMEND [Concomitant]
     Route: 048
  3. PANITUMUMAB [Suspect]
     Indication: COLORECTAL CANCER
     Dosage: 290 MG, Q2WK
     Route: 041
     Dates: start: 20110428, end: 20111122
  4. FLUOROURACIL [Concomitant]
     Indication: COLORECTAL CANCER
     Dosage: 575 MG, Q2WK
     Route: 040
     Dates: start: 20110414
  5. FLUOROURACIL [Concomitant]
     Dosage: 2800 MG, UNK
     Route: 041
     Dates: end: 20111122
  6. PREDNISOLONE [Concomitant]
     Dosage: UNK UNK, QD
  7. ALDACTONE [Concomitant]
     Route: 048
  8. MIKELAN LA [Concomitant]
  9. OXALIPLATIN [Concomitant]
     Indication: COLORECTAL CANCER
     Dosage: UNK UNK, Q2WK
     Route: 041
     Dates: start: 20110414, end: 20110811
  10. ISOVORIN [Concomitant]
     Indication: COLORECTAL CANCER
     Dosage: 288 MG, Q2WK
     Route: 041
     Dates: start: 20110414, end: 20111122
  11. FLUOROURACIL [Concomitant]
     Dosage: 3450 MG, UNK
     Route: 041
     Dates: start: 20110414
  12. FLUOROURACIL [Concomitant]
     Dosage: 475 MG, UNK
     Route: 040
     Dates: end: 20111122
  13. TSUMURA CHOREITO [Concomitant]
     Route: 048
  14. PURSENNID [Concomitant]
     Route: 048
  15. MAGMITT [Concomitant]
     Route: 048
  16. MINOCYCLINE HCL [Concomitant]
  17. DECADRON [Concomitant]
     Route: 065
  18. LASIX [Concomitant]
     Route: 065
  19. AMLODIPINE [Concomitant]
     Route: 048

REACTIONS (2)
  - INTERSTITIAL LUNG DISEASE [None]
  - NEUROPATHY PERIPHERAL [None]
